FAERS Safety Report 5564639-2 (Version None)
Quarter: 2007Q4

REPORT INFORMATION
  Report Type: 
  Country: None (occurrence: None)
  Receive Date: 20071218
  Receipt Date: 20071214
  Transmission Date: 20080405
  Serious: Yes (Other)
  Sender: FDA-Public Use
  Company Number: GB-ALLERGAN-0712954US

PATIENT
  Sex: Male
  Weight: 100 kg

DRUGS (1)
  1. BOTOX [Suspect]
     Indication: SKIN WRINKLING
     Dosage: 48 UNITS, SINGLE
     Route: 030
     Dates: start: 20071106, end: 20071106

REACTIONS (4)
  - EAR INFECTION [None]
  - EAR PAIN [None]
  - FACIAL PALSY [None]
  - HEADACHE [None]
